FAERS Safety Report 16122071 (Version 1)
Quarter: 2019Q2

REPORT INFORMATION
  Report Type: Spontaneous
  Country: US (occurrence: US)
  Receive Date: 20190326
  Receipt Date: 20190326
  Transmission Date: 20190711
  Serious: Yes (Hospitalization)
  Sender: FDA-Public Use
  Company Number: None

PATIENT
  Sex: Female

DRUGS (22)
  1. HYDROMORPHONE HCL [Concomitant]
     Active Substance: HYDROMORPHONE HYDROCHLORIDE
  2. AMIKACIN SULFATE. [Concomitant]
     Active Substance: AMIKACIN SULFATE
  3. KALYDECO [Suspect]
     Active Substance: IVACAFTOR
     Indication: CYSTIC FIBROSIS LUNG
     Dosage: ?          OTHER FREQUENCY:EVERY TWELVE (12);?
     Route: 048
  4. D3-1000 [Concomitant]
  5. BELSOMRA [Concomitant]
     Active Substance: SUVOREXANT
  6. LMX 4 [Concomitant]
  7. AZITHROMYCIN ANHYDROUS. [Concomitant]
     Active Substance: AZITHROMYCIN ANHYDROUS
  8. VITAMIN C [Concomitant]
     Active Substance: ASCORBIC ACID
  9. METOCLOPRAMIDE HCL [Concomitant]
     Active Substance: METOCLOPRAMIDE HYDROCHLORIDE
  10. URSODIOL. [Concomitant]
     Active Substance: URSODIOL
  11. ACETAMINOPHEN. [Concomitant]
     Active Substance: ACETAMINOPHEN
  12. CREON [Concomitant]
     Active Substance: PANCRELIPASE AMYLASE\PANCRELIPASE LIPASE\PANCRELIPASE PROTEASE
  13. IPRATROPIUM BROMIDE/ALBUT [Concomitant]
  14. DRONABINOL. [Concomitant]
     Active Substance: DRONABINOL
  15. ONDANSETRON HCL [Concomitant]
     Active Substance: ONDANSETRON HYDROCHLORIDE
  16. CHOICEFUL VITAMINS [Concomitant]
  17. LORAZEPAM. [Concomitant]
     Active Substance: LORAZEPAM
  18. AQUADEKS [Concomitant]
     Active Substance: MINERALS\VITAMINS
  19. FERREX 150 [Concomitant]
  20. DRONABINOL. [Concomitant]
     Active Substance: DRONABINOL
  21. LANSOPRAZOLE. [Concomitant]
     Active Substance: LANSOPRAZOLE
  22. PULMOZYME [Concomitant]
     Active Substance: DORNASE ALFA

REACTIONS (1)
  - Hospitalisation [None]
